FAERS Safety Report 5567340-4 (Version None)
Quarter: 2007Q4

REPORT INFORMATION
  Report Type: 
  Country: None (occurrence: None)
  Receive Date: 20071219
  Receipt Date: 20070918
  Transmission Date: 20080405
  Serious: No
  Sender: FDA-Public Use
  Company Number: US-ABBOTT-07P-163-0415444-00

PATIENT
  Sex: Female
  Weight: 123 kg

DRUGS (5)
  1. DILAUDID [Suspect]
     Indication: PAIN
     Dosage: 10-20 MG
     Route: 030
     Dates: start: 20070201
  2. OXYCODONE HYDROCHLORIDE [Concomitant]
     Indication: ARTHRALGIA
     Route: 048
  3. HUMULIN 70/30 [Concomitant]
     Indication: DIABETES MELLITUS
     Dosage: SLIDING SCALE
     Route: 058
  4. OXYGEN [Concomitant]
     Indication: DRUG USE FOR UNKNOWN INDICATION
  5. UNREPORTED MEDICATION [Concomitant]
     Indication: DRUG USE FOR UNKNOWN INDICATION

REACTIONS (3)
  - DRUG INEFFECTIVE [None]
  - INJECTION SITE IRRITATION [None]
  - UNEVALUABLE EVENT [None]
